FAERS Safety Report 20736887 (Version 1)
Quarter: 2022Q2

REPORT INFORMATION
  Report Type: Spontaneous
  Country: US (occurrence: US)
  Receive Date: 20220421
  Receipt Date: 20220421
  Transmission Date: 20220721
  Serious: No
  Sender: FDA-Public Use
  Company Number: US-PFIZER INC-202101220197

PATIENT
  Sex: Male

DRUGS (2)
  1. PENICILLIN G BENZATHINE [Suspect]
     Active Substance: PENICILLIN G BENZATHINE
     Dosage: UNK
  2. PROCAINE [Suspect]
     Active Substance: PROCAINE
     Dosage: UNK

REACTIONS (1)
  - Pain [Unknown]
